FAERS Safety Report 16154868 (Version 2)
Quarter: 2019Q3

REPORT INFORMATION
  Report Type: Spontaneous
  Country: JP (occurrence: JP)
  Receive Date: 20190403
  Receipt Date: 20190723
  Transmission Date: 20191004
  Serious: Yes (Death)
  Sender: FDA-Public Use
  Company Number: JP-NAPPMUNDI-GBR-2019-0065585

PATIENT
  Age: 77 Year
  Sex: Male

DRUGS (7)
  1. OXIFAST [Suspect]
     Active Substance: OXYCODONE
     Indication: CANCER PAIN
     Dosage: 24 MG, DAILY
     Route: 042
     Dates: start: 20181121, end: 20190101
  2. OXIFAST [Suspect]
     Active Substance: OXYCODONE
     Dosage: 1 MG, SINGLE (AS A RESCUE MEDICINE)
     Route: 065
     Dates: start: 20181128
  3. MAGNESIUM OXIDE. [Concomitant]
     Active Substance: MAGNESIUM OXIDE
     Indication: CONSTIPATION
     Dosage: 1500 MG, DAILY (1 TABLET 3 TIMES DAILY, AFTER MEALS)
     Route: 048
  4. OXIFAST [Suspect]
     Active Substance: OXYCODONE
     Dosage: 12 MG, DAILY
     Route: 042
     Dates: start: 20181119
  5. SENNOSIDE                          /00571901/ [Concomitant]
     Active Substance: SENNOSIDES A AND B
     Indication: CONSTIPATION
     Dosage: 24 MG, DAILY (2 TABLETS ONCE DAILY, BEFORE BEDTIME)
     Route: 048
  6. LYRICA [Concomitant]
     Active Substance: PREGABALIN
     Indication: CANCER PAIN
     Dosage: 225 MG, DAILY (1 CAPSULE 3 TIMES DAILY AFTER MEALS)
     Route: 048
  7. AMITIZA [Concomitant]
     Active Substance: LUBIPROSTONE
     Indication: CONSTIPATION
     Dosage: 48 MCG, DAILY (1 CAPSULE TWICE DAILY, AFTER BREAKFAST AND DINNER)
     Route: 048

REACTIONS (4)
  - Lung neoplasm malignant [Fatal]
  - Inadequate analgesia [Recovered/Resolved]
  - Metastases to central nervous system [Fatal]
  - Constipation [Unknown]

NARRATIVE: CASE EVENT DATE: 20181128
